FAERS Safety Report 6648929-8 (Version None)
Quarter: 2010Q1

REPORT INFORMATION
  Report Type: 
  Country: None (occurrence: None)
  Receive Date: 20100324
  Receipt Date: 20100315
  Transmission Date: 20100710
  Serious: Yes (Death)
  Sender: FDA-Public Use
  Company Number: US-PFIZER INC-2008152048

PATIENT
  Sex: Male

DRUGS (7)
  1. CHANTIX [Suspect]
     Indication: SMOKING CESSATION THERAPY
     Dosage: UNK
     Dates: start: 20080801
  2. LEVOTHYROXINE SODIUM [Concomitant]
     Dosage: 0.2 MG, 1X/DAY
  3. SEROQUEL [Concomitant]
     Indication: INSOMNIA
     Dosage: UNK, AT BEDTIME
  4. SEROQUEL [Concomitant]
     Indication: DEPRESSION
  5. OXYCODONE HCL [Concomitant]
     Indication: PAIN
     Dosage: UNK, AS NEEDED
  6. MESTINON [Concomitant]
     Dosage: 60 MG, 2X/DAY
  7. WELLBUTRIN [Suspect]

REACTIONS (6)
  - ASTHENIA [None]
  - DIARRHOEA [None]
  - MYOCARDIAL INFARCTION [None]
  - NAUSEA [None]
  - NIGHTMARE [None]
  - VOMITING [None]
